FAERS Safety Report 5087827-0 (Version None)
Quarter: 2006Q3

REPORT INFORMATION
  Report Type: 
  Country: None (occurrence: None)
  Receive Date: 20060821
  Receipt Date: 20060821
  Transmission Date: 20061208
  Serious: Yes (Hospitalization)
  Sender: FDA-Public Use
  Company Number: None

PATIENT
  Age: 86 Year
  Sex: Male
  Weight: 86.637 kg

DRUGS (14)
  1. DIGOXIN [Suspect]
     Dosage: 0.25 MG DAILY PO
     Route: 048
     Dates: start: 20060705, end: 20060818
  2. ALBUTEROL [Concomitant]
  3. FLUNISOLIDE [Concomitant]
  4. LANSPRAZOLE [Concomitant]
  5. MONTELUKAST [Concomitant]
  6. TAMSULOSIN HCL [Concomitant]
  7. IPRATROPIUM BROMIDE [Concomitant]
  8. WARFARIN SODIUM [Concomitant]
  9. TIOTROPIUM [Concomitant]
  10. LISINOPRIL [Concomitant]
  11. LEVOTHYROXINE SODIUM [Concomitant]
  12. LOVASTATIN [Concomitant]
  13. FUROSEMIDE [Concomitant]
  14. DILTIAZEM HCL [Concomitant]

REACTIONS (3)
  - CARDIOACTIVE DRUG LEVEL INCREASED [None]
  - CHRONIC OBSTRUCTIVE PULMONARY DISEASE [None]
  - OEDEMA PERIPHERAL [None]
